FAERS Safety Report 13519215 (Version 1)
Quarter: 2017Q2

REPORT INFORMATION
  Report Type: Spontaneous
  Country: DE (occurrence: DE)
  Receive Date: 20170505
  Receipt Date: 20170505
  Transmission Date: 20170830
  Serious: Yes (Other)
  Sender: FDA-Public Use
  Company Number: DE-PFIZER INC-2017189482

PATIENT
  Sex: Female

DRUGS (3)
  1. VENLAFAXINE HCL [Suspect]
     Active Substance: VENLAFAXINE HYDROCHLORIDE
     Indication: DEPRESSION
     Dosage: 225 MG, DAILY
     Route: 064
     Dates: start: 20160110, end: 2016
  2. FOLIO [Concomitant]
     Active Substance: FOLIC ACID
     Indication: PROPHYLAXIS OF NEURAL TUBE DEFECT
     Dosage: 0.4 MG, DAILY; 1 TRIMESTER; 8. - 35.4. GESTATIONAL WEEK
     Route: 064
  3. VENLAFAXINE HCL [Suspect]
     Active Substance: VENLAFAXINE HYDROCHLORIDE
     Dosage: 50 MG, DAILY FROM WEEK 4+1
     Route: 064
     Dates: end: 20161006

REACTIONS (4)
  - Small for dates baby [Recovering/Resolving]
  - Amniotic fluid volume decreased [Unknown]
  - Maternal exposure during pregnancy [Unknown]
  - Foetal growth restriction [Recovering/Resolving]

NARRATIVE: CASE EVENT DATE: 2016
